FAERS Safety Report 25795077 (Version 1)
Quarter: 2025Q3

REPORT INFORMATION
  Report Type: Spontaneous
  Country: GB (occurrence: GB)
  Receive Date: 20250912
  Receipt Date: 20250912
  Transmission Date: 20251020
  Serious: Yes (Other)
  Sender: TEVA
  Company Number: GB-MHRA-TPP38000122C10718429YC1757411150477

PATIENT
  Age: 71 Year
  Sex: Male
  Weight: 108 kg

DRUGS (20)
  1. METFORMIN [Suspect]
     Active Substance: METFORMIN HYDROCHLORIDE
     Indication: Ill-defined disorder
     Dosage: TAKE TWO TABLETS TWICE DAILY, 2000 MG DAILY
     Route: 065
     Dates: start: 20250827
  2. ACETAMINOPHEN [Concomitant]
     Active Substance: ACETAMINOPHEN
     Indication: Ill-defined disorder
     Dates: start: 20240517
  3. MACROGOL COMPOUND [Concomitant]
     Indication: Ill-defined disorder
     Dates: start: 20240517
  4. LOSARTAN [Concomitant]
     Active Substance: LOSARTAN
     Indication: Ill-defined disorder
     Dosage: ONE TABLET TO BE TAKEN TWICE DAILY, 2 DOSAGE FORMS DAILY
     Dates: start: 20240517
  5. APIXABAN [Concomitant]
     Active Substance: APIXABAN
     Indication: Ill-defined disorder
     Dosage: TAKE ONE TWICE DAILY, 2  DOSAGE FORMS DAILY
     Dates: start: 20240517
  6. TRAMADOL [Concomitant]
     Active Substance: TRAMADOL
     Indication: Ill-defined disorder
     Dosage: TAKE ONE TWICE DAILY PRN, 2 DOSAGE FORMS DAILY
     Dates: start: 20240517
  7. UMECLIDINIUM BROMIDE\VILANTEROL TRIFENATATE [Concomitant]
     Active Substance: UMECLIDINIUM BROMIDE\VILANTEROL TRIFENATATE
     Indication: Ill-defined disorder
     Dosage: ONE DOSE TO BE INHALED ONCE A DAY AS DIRECTED. ..., 1 DOSAGE FORMS DAILY, PATIENT ROA : RESPIRATO...
     Dates: start: 20240517
  8. LEVOTHYROXINE [Concomitant]
     Active Substance: LEVOTHYROXINE
     Indication: Ill-defined disorder
     Dosage: ONE AND A HALF  TABLET TO BE TAKEN ONCE A DAY I..., 1.5 DOSAGE FORMS DAILY
     Dates: start: 20240517
  9. OMEPRAZOLE [Concomitant]
     Active Substance: OMEPRAZOLE
     Indication: Ill-defined disorder
     Dosage: TAKE ONE CAPSULE TWICE DAILY, 2 DOSAGE FORMS DAILY
     Dates: start: 20240517
  10. NOVORAPID [Concomitant]
     Active Substance: INSULIN ASPART
     Indication: Ill-defined disorder
     Dates: start: 20240517
  11. AMLODIPINE [Concomitant]
     Active Substance: AMLODIPINE BESYLATE
     Indication: Ill-defined disorder
     Dosage: TWO TABLET TO BE TAKEN DAILY, 2 DOSAGE FORMS DAILY
     Dates: start: 20240517
  12. ROSUVASTATIN [Concomitant]
     Active Substance: ROSUVASTATIN
     Indication: Ill-defined disorder
     Dosage: TAKE ONE DAILY
     Dates: start: 20240517
  13. SILDENAFIL [Concomitant]
     Active Substance: SILDENAFIL
     Indication: Ill-defined disorder
     Dates: start: 20240517
  14. SENNA [Concomitant]
     Active Substance: SENNOSIDES
     Indication: Ill-defined disorder
     Dates: start: 20240517, end: 20250827
  15. LANTUS [Concomitant]
     Active Substance: INSULIN GLARGINE
     Indication: Ill-defined disorder
     Route: 058
     Dates: start: 20240517
  16. ALBUTEROL [Concomitant]
     Active Substance: ALBUTEROL
     Indication: Ill-defined disorder
     Dates: start: 20240517
  17. EZETIMIBE [Concomitant]
     Active Substance: EZETIMIBE
     Indication: Ill-defined disorder
     Dosage: ONE TABLET TO BE TAKEN ONCE A DAY, 1 DOSAGE FORMS DAILY
     Dates: start: 20240517
  18. FENBID [Concomitant]
     Indication: Ill-defined disorder
     Dates: start: 20240517
  19. DOXAZOSIN [Concomitant]
     Active Substance: DOXAZOSIN MESYLATE
     Indication: Ill-defined disorder
     Dosage: ONE TABLET TO BE TAKEN ONCE A DAY ON, 1 DOSAGE FORMS DAILY
     Dates: start: 20240626
  20. CETIRIZINE [Concomitant]
     Active Substance: CETIRIZINE HYDROCHLORIDE
     Indication: Ill-defined disorder
     Dosage: ONE TABLET TO BE TAKEN DAILY, 1 DOSAGE FORMS DAILY
     Dates: start: 20240517

REACTIONS (1)
  - Constipation [Recovered/Resolved]
